FAERS Safety Report 4716518-8 (Version None)
Quarter: 2005Q3

REPORT INFORMATION
  Report Type: 
  Country: None (occurrence: None)
  Receive Date: 20050719
  Receipt Date: 20050525
  Transmission Date: 20060218
  Serious: Yes (Death)
  Sender: FDA-Public Use
  Company Number: US-BRISTOL-MYERS SQUIBB COMPANY-12981890

PATIENT
  Age: 47 Year
  Sex: Female

DRUGS (2)
  1. PARAPLATIN [Suspect]
     Indication: LUNG CANCER METASTATIC
     Dates: start: 20050225, end: 20050225
  2. VEPESID [Suspect]
     Indication: LUNG CANCER METASTATIC
     Dates: start: 20050225, end: 20050225

REACTIONS (1)
  - MALIGNANT NEOPLASM PROGRESSION [None]
